FAERS Safety Report 23375237 (Version 1)
Quarter: 2024Q1

REPORT INFORMATION
  Report Type: Spontaneous
  Country: US (occurrence: US)
  Receive Date: 20240106
  Receipt Date: 20240106
  Transmission Date: 20240410
  Serious: Yes (Other)
  Sender: FDA-Public Use
  Company Number: US-009507513-2312USA010354

PATIENT
  Age: 67 Year
  Sex: Male

DRUGS (1)
  1. KEYTRUDA [Suspect]
     Active Substance: PEMBROLIZUMAB
     Indication: Malignant melanoma stage III
     Dosage: UNK

REACTIONS (5)
  - Myocarditis [Recovered/Resolved]
  - Diaphragmatic paralysis [Recovered/Resolved]
  - Shunt malfunction [Recovered/Resolved]
  - Hypoxia [Recovered/Resolved]
  - Myositis [Recovered/Resolved]
